FAERS Safety Report 5058056-1 (Version None)
Quarter: 2006Q3

REPORT INFORMATION
  Report Type: 
  Country: None (occurrence: None)
  Receive Date: 20060721
  Receipt Date: 20060629
  Transmission Date: 20061208
  Serious: Yes (Other)
  Sender: FDA-Public Use
  Company Number: US-ROCHE-453666

PATIENT
  Age: 42 Year
  Sex: Female

DRUGS (6)
  1. PEGASYS [Suspect]
     Dosage: ROUTE REPORTED AS INJECTABLE (INJ).
     Route: 050
     Dates: start: 20060613, end: 20060627
  2. COPEGUS [Suspect]
     Dosage: DOSAGE REGIMEN REPORTED AS 3 AM, 2 PM.
     Route: 048
     Dates: start: 20060613, end: 20060627
  3. LAMICTAL [Concomitant]
     Indication: BIPOLAR DISORDER
     Route: 048
  4. KLONOPIN [Concomitant]
     Indication: NERVOUSNESS
     Route: 048
  5. HYDROCHLOROTHIAZIDE/LISINOPRIL [Concomitant]
     Dosage: REPORTED AS HCTZ/LISINOPRIL.
     Route: 048
  6. KLOR-CON [Concomitant]

REACTIONS (10)
  - ANOREXIA [None]
  - ASTHENIA [None]
  - BIPOLAR DISORDER [None]
  - BLOOD PRESSURE DECREASED [None]
  - BLOOD URINE PRESENT [None]
  - CONDITION AGGRAVATED [None]
  - DYSSTASIA [None]
  - FEAR [None]
  - IRRITABILITY [None]
  - SUICIDAL IDEATION [None]
